FAERS Safety Report 5930403-5 (Version None)
Quarter: 2008Q4

REPORT INFORMATION
  Report Type: 
  Country: None (occurrence: None)
  Receive Date: 20081021
  Receipt Date: 20081006
  Transmission Date: 20090506
  Serious: No
  Sender: FDA-Public Use
  Company Number: SPI200800468

PATIENT
  Age: 48 Year
  Sex: Female
  Weight: 86.6 kg

DRUGS (2)
  1. AMITIZA [Suspect]
     Dosage: 24 MCG, BID, ORAL; 24 MCG, QD, ORAL; 8 MCG,
     Route: 048
  2. LAMISIL /00992601/ (TERBINAFINE) [Concomitant]

REACTIONS (1)
  - DYSPNOEA [None]
